FAERS Safety Report 24885748 (Version 2)
Quarter: 2025Q1

REPORT INFORMATION
  Report Type: Spontaneous
  Country: SE (occurrence: SE)
  Receive Date: 20250125
  Receipt Date: 20250320
  Transmission Date: 20250409
  Serious: Yes (Hospitalization)
  Sender: UNITED THERAPEUTICS
  Company Number: SE-UNITED THERAPEUTICS-UNT-2025-001823

PATIENT

DRUGS (1)
  1. REMODULIN [Suspect]
     Active Substance: TREPROSTINIL
     Indication: Pulmonary arterial hypertension
     Route: 041

REACTIONS (7)
  - Blood pressure increased [Recovered/Resolved]
  - Palpitations [Recovered/Resolved]
  - Flushing [Recovered/Resolved]
  - Malaise [Recovered/Resolved]
  - Nausea [Recovered/Resolved]
  - Headache [Recovered/Resolved]
  - Product leakage [Recovered/Resolved]
